FAERS Safety Report 9722821 (Version 3)
Quarter: 2014Q3

REPORT INFORMATION
  Report Type: Report from Study
  Country: DE (occurrence: DE)
  Receive Date: 20131202
  Receipt Date: 20140728
  Transmission Date: 20150326
  Serious: Yes (Hospitalization)
  Sender: FDA-Public Use
  Company Number: DE-009507513-1311DEU010733

PATIENT
  Age: 53 Year
  Sex: Male
  Weight: 78 kg

DRUGS (2)
  1. DEXAMETHASONE. [Suspect]
     Active Substance: DEXAMETHASONE
     Indication: PLASMA CELL MYELOMA
     Dosage: 20 MG, ORALLY ON DAYS ONE, TWO, FOUR, FIVE, EIGHT, NINE, 11, 12 EVERY 21 DAYS
     Route: 048
     Dates: start: 20130826, end: 20130906
  2. BORTEZOMIB [Suspect]
     Active Substance: BORTEZOMIB
     Indication: PLASMA CELL MYELOMA
     Dosage: 2.55 MG/M2 ON DAYS ONE, FOUR, EIGHT, 11 EVERY 21 DAYS
     Route: 058
     Dates: start: 20130826, end: 20130905

REACTIONS (1)
  - General physical health deterioration [Unknown]

NARRATIVE: CASE EVENT DATE: 20130912
